FAERS Safety Report 4809804-4 (Version None)
Quarter: 2005Q4

REPORT INFORMATION
  Report Type: 
  Country: None (occurrence: None)
  Receive Date: 20051024
  Receipt Date: 20051012
  Transmission Date: 20060501
  Serious: Yes (Death, Hospitalization)
  Sender: FDA-Public Use
  Company Number: A-US2005-10795

PATIENT
  Age: 6 Year
  Sex: Female

DRUGS (1)
  1. TRACLEER [Suspect]
     Indication: PULMONARY HYPERTENSION
     Dosage: UNK, UNK, ORAL
     Route: 048

REACTIONS (8)
  - COMPLICATIONS OF TRANSPLANTED LIVER [None]
  - FUNGAL SEPSIS [None]
  - HEART AND LUNG TRANSPLANT [None]
  - IMMUNOSUPPRESSION [None]
  - LIVER TRANSPLANT [None]
  - MYOCARDIAL INFARCTION [None]
  - PULMONARY HYPERTENSION [None]
  - RIGHT VENTRICULAR FAILURE [None]
